FAERS Safety Report 8161976-2 (Version None)
Quarter: 2012Q1

REPORT INFORMATION
  Report Type: 
  Country: None (occurrence: None)
  Receive Date: 20120224
  Receipt Date: 20120222
  Transmission Date: 20120608
  Serious: Yes (Hospitalization, Congenital Anomaly, Other)
  Sender: FDA-Public Use
  Company Number: US-PFIZER INC-2011158406

PATIENT
  Sex: Female
  Weight: 2.75 kg

DRUGS (13)
  1. EFFEXOR XR [Suspect]
     Indication: BIPOLAR DISORDER
     Dosage: 150 MG, 1X/DAY
     Route: 064
     Dates: start: 20100101
  2. FOLIC ACID [Concomitant]
     Dosage: UNK
     Route: 064
  3. ONDANSETRON [Concomitant]
     Indication: NAUSEA
     Dosage: 4 MG, 3X/DAY, AS NEEDED
     Route: 064
  4. SEROQUEL [Concomitant]
     Indication: BIPOLAR DISORDER
     Dosage: 25 MG, 1X/DAY, EVERY BEDTIME
     Route: 064
     Dates: start: 20100101
  5. NICOTINE [Concomitant]
     Dosage: 7 MG, UNK
     Route: 064
     Dates: start: 20101119
  6. FERROUS SULFATE TAB [Concomitant]
     Dosage: 325 MG, UNK
     Route: 064
     Dates: start: 20101119
  7. MULTI-VITAMINS [Concomitant]
     Dosage: UNK
     Route: 064
  8. ONDANSETRON [Concomitant]
     Indication: VOMITING
  9. EFFEXOR [Suspect]
     Indication: BIPOLAR DISORDER
     Dosage: 25 MG, 1X/DAY
     Route: 064
  10. CLONAZEPAM [Concomitant]
     Dosage: 0.5 MG, UNK
     Route: 064
     Dates: start: 20100101
  11. CLONAZEPAM [Concomitant]
     Dosage: 1 MG, UNK
     Dates: start: 20101119
  12. NICOTINE [Concomitant]
     Dosage: 14 MG, UNK
     Route: 064
     Dates: start: 20101102
  13. KLONOPIN [Concomitant]
     Indication: BIPOLAR DISORDER
     Dosage: 0.25 MG, 1X/DAY, EVERY BEDTIME
     Route: 064

REACTIONS (18)
  - FEEDING DISORDER NEONATAL [None]
  - ATRIAL SEPTAL DEFECT [None]
  - PATENT DUCTUS ARTERIOSUS [None]
  - DIARRHOEA [None]
  - GASTROOESOPHAGEAL REFLUX DISEASE [None]
  - FOOD ALLERGY [None]
  - BENIGN CONGENITAL HYPOTONIA [None]
  - CARDIAC MURMUR [None]
  - PARTIAL SEIZURES [None]
  - CONJUNCTIVITIS [None]
  - CONSTIPATION [None]
  - VOMITING [None]
  - PULMONARY VALVE INCOMPETENCE [None]
  - CARDIOMEGALY [None]
  - MATERNAL EXPOSURE TIMING UNSPECIFIED [None]
  - TRICUSPID VALVE INCOMPETENCE [None]
  - DACRYOSTENOSIS CONGENITAL [None]
  - ORAL CANDIDIASIS [None]
